FAERS Safety Report 18464279 (Version 1)
Quarter: 2020Q4

REPORT INFORMATION
  Report Type: Spontaneous
  Country: US (occurrence: US)
  Receive Date: 20201104
  Receipt Date: 20201104
  Transmission Date: 20210114
  Serious: Yes (Other)
  Sender: FDA-Public Use
  Company Number: US-TAKEDA-2020TUS044356

PATIENT
  Sex: Female
  Weight: 485.71 kg

DRUGS (25)
  1. GABAPENTIN. [Concomitant]
     Active Substance: GABAPENTIN
  2. VITAMIN D2 [Concomitant]
     Active Substance: ERGOCALCIFEROL
  3. FENOFIBRATE. [Concomitant]
     Active Substance: FENOFIBRATE
  4. DIPHENHYDRAMINE. [Concomitant]
     Active Substance: DIPHENHYDRAMINE
  5. PREMARIN [Concomitant]
     Active Substance: ESTROGENS, CONJUGATED
  6. PROPRANOLOL [Concomitant]
     Active Substance: PROPRANOLOL HYDROCHLORIDE
  7. ALLEGRA-D [FEXOFENADINE;PSEUDOEPHEDRINE HYDROCHLORIDE] [Concomitant]
  8. NORMAL SALINE [Concomitant]
     Active Substance: SODIUM CHLORIDE
  9. RELPAX [Concomitant]
     Active Substance: ELETRIPTAN HYDROBROMIDE
  10. PROMETHAZINE [Concomitant]
     Active Substance: PROMETHAZINE HYDROCHLORIDE
  11. LEXAPRO [Concomitant]
     Active Substance: ESCITALOPRAM OXALATE
  12. OVCON [Concomitant]
     Active Substance: ETHINYL ESTRADIOL\NORETHINDRONE
  13. HYQVIA [Suspect]
     Active Substance: HUMAN IMMUNOGLOBULIN G\HYALURONIDASE RECOMBINANT HUMAN
     Indication: IMMUNODEFICIENCY COMMON VARIABLE
     Dosage: 40 GRAM, Q3WEEKS
     Route: 058
     Dates: start: 20160224
  14. DOXYCYCLINE. [Concomitant]
     Active Substance: DOXYCYCLINE
  15. CLARITIN-D NOS [Concomitant]
     Active Substance: LORATADINE\PSEUDOEPHEDRINE SULFATE
  16. METHOCARBAMOL. [Concomitant]
     Active Substance: METHOCARBAMOL
  17. ZOFRAN [Concomitant]
     Active Substance: ONDANSETRON HYDROCHLORIDE
  18. LMX4 [Concomitant]
     Active Substance: LIDOCAINE
  19. DEPAKOTE [Concomitant]
     Active Substance: DIVALPROEX SODIUM
  20. PRAMIPEXOLE. [Concomitant]
     Active Substance: PRAMIPEXOLE
  21. OMEPRAZOLE. [Concomitant]
     Active Substance: OMEPRAZOLE
  22. ZONISAMIDE. [Concomitant]
     Active Substance: ZONISAMIDE
  23. ACETAMINOPHEN. [Concomitant]
     Active Substance: ACETAMINOPHEN
  24. EPINEPHRINE. [Concomitant]
     Active Substance: EPINEPHRINE
  25. ATORVASTATIN [Concomitant]
     Active Substance: ATORVASTATIN

REACTIONS (1)
  - Breast cancer stage II [Unknown]
